FAERS Safety Report 8277802-7 (Version None)
Quarter: 2012Q2

REPORT INFORMATION
  Report Type: 
  Country: None (occurrence: None)
  Receive Date: 20120412
  Receipt Date: 20120412
  Transmission Date: 20120825
  Serious: Yes (Other)
  Sender: FDA-Public Use
  Company Number: US-BAYER-2012-008249

PATIENT
  Age: 46 Year
  Sex: Female
  Weight: 98.413 kg

DRUGS (2)
  1. INTERFERON BETA-1B [Suspect]
     Indication: RELAPSING-REMITTING MULTIPLE SCLEROSIS
     Dosage: 300 ?G, QOD
     Route: 058
     Dates: start: 20111101, end: 20120201
  2. IBUPROFEN (ADVIL) [Concomitant]

REACTIONS (4)
  - VISUAL ACUITY REDUCED [None]
  - INFLUENZA LIKE ILLNESS [None]
  - UHTHOFF'S PHENOMENON [None]
  - PYREXIA [None]
